FAERS Safety Report 9631446 (Version 1)
Quarter: 2013Q4

REPORT INFORMATION
  Report Type: Spontaneous
  Country: IN (occurrence: None)
  Receive Date: 20131011
  Receipt Date: 20131011
  Transmission Date: 20140711
  Serious: Yes (Death)
  Sender: FDA-Public Use
  Company Number: B0928409A

PATIENT
  Sex: Male

DRUGS (8)
  1. LAMIVUDINE-HIV [Suspect]
     Indication: HIV INFECTION
     Dates: start: 2005
  2. RETROVIR [Suspect]
     Indication: HIV INFECTION
     Dates: start: 2004
  3. ABACAVIR SULPHATE [Suspect]
     Indication: HIV INFECTION
     Dates: start: 2008
  4. EFAVIRENZ [Suspect]
     Indication: HIV INFECTION
  5. DIDANOSINE [Suspect]
     Indication: HIV INFECTION
  6. LOPINAVIR + RITONAVIR [Suspect]
     Indication: HIV INFECTION
  7. NEVIRAPINE [Suspect]
     Indication: HIV INFECTION
  8. STAVUDINE [Suspect]
     Indication: HIV INFECTION
     Dates: start: 2005

REACTIONS (1)
  - Treatment failure [None]
